FAERS Safety Report 22646398 (Version 1)
Quarter: 2023Q2

REPORT INFORMATION
  Report Type: Spontaneous
  Country: FR (occurrence: FR)
  Receive Date: 20230627
  Receipt Date: 20230627
  Transmission Date: 20230721
  Serious: Yes (Other)
  Sender: FDA-Public Use
  Company Number: FR-TEVA-2023-FR-2900179

PATIENT
  Age: 59 Year
  Sex: Female

DRUGS (4)
  1. ACTIQ [Suspect]
     Active Substance: FENTANYL CITRATE
     Indication: Fibromyalgia
     Dosage: FORM STRENGTH: 200MICROGRAM
     Route: 048
     Dates: start: 2013
  2. KARDEGIC [Concomitant]
     Active Substance: ASPIRIN DL-LYSINE
     Indication: Vascular device user
  3. PLAVIX [Concomitant]
     Active Substance: CLOPIDOGREL BISULFATE
     Indication: Vascular device user
  4. LEVOTHYROXINE [Concomitant]
     Active Substance: LEVOTHYROXINE
     Indication: Thyroid disorder

REACTIONS (9)
  - Foreign body in throat [Recovered/Resolved]
  - Product quality issue [Unknown]
  - Intentional product misuse [Unknown]
  - Product prescribing issue [Unknown]
  - Off label use [Unknown]
  - Incorrect dose administered [Unknown]
  - Product solubility abnormal [Unknown]
  - Poor quality product administered [Unknown]
  - Drug dose titration not performed [Unknown]

NARRATIVE: CASE EVENT DATE: 20230620
